FAERS Safety Report 8843306 (Version 1)
Quarter: 2012Q4

REPORT INFORMATION
  Report Type: 
  Country: SE (occurrence: SE)
  Receive Date: 20121016
  Receipt Date: 20121016
  Transmission Date: 20130627
  Serious: Yes (Life-Threatening)
  Sender: FDA-Public Use
  Company Number: SE-MYLANLABS-2012S1020754

PATIENT
  Age: 75 Year
  Sex: Male

DRUGS (6)
  1. SOTALOL [Suspect]
     Indication: PRODUCT USED FOR UNKNOWN INDICATION
  2. ATACAND [Concomitant]
     Indication: PRODUCT USED FOR UNKNOWN INDICATION
  3. NITROLINGUAL [Concomitant]
     Indication: PRODUCT USED FOR UNKNOWN INDICATION
  4. WARAN [Concomitant]
     Indication: PRODUCT USED FOR UNKNOWN INDICATION
  5. PLENDIL [Concomitant]
     Indication: PRODUCT USED FOR UNKNOWN INDICATION
  6. INNOHEP [Concomitant]
     Indication: PRODUCT USED FOR UNKNOWN INDICATION

REACTIONS (10)
  - Ventricular fibrillation [Unknown]
  - Torsade de pointes [Unknown]
  - Electrocardiogram QT prolonged [Unknown]
  - Abdominal pain [Unknown]
  - Vomiting [Unknown]
  - Blood pressure increased [Unknown]
  - Cholelithiasis [Unknown]
  - Diarrhoea [Unknown]
  - Intermittent claudication [Unknown]
  - Cholecystitis [Unknown]
